FAERS Safety Report 6088939-5 (Version None)
Quarter: 2009Q1

REPORT INFORMATION
  Report Type: 
  Country: None (occurrence: None)
  Receive Date: 20090224
  Receipt Date: 20090122
  Transmission Date: 20090719
  Serious: No
  Sender: FDA-Public Use
  Company Number: US-BAYER-200910253BCC

PATIENT
  Age: 68 Year
  Sex: Female
  Weight: 96 kg

DRUGS (13)
  1. ALEVE [Suspect]
     Indication: ARTHRALGIA
     Dosage: TOTAL DAILY DOSE: 880 MG  UNIT DOSE: 220 MG
     Route: 048
     Dates: start: 20080701
  2. ALLEGRA [Concomitant]
  3. ZESTORETIC [Concomitant]
  4. ADVAIR HFA [Concomitant]
  5. ZETIA [Concomitant]
  6. TERBUTALINE SULFATE [Concomitant]
  7. SINGULAIR [Concomitant]
  8. ALLOPURINOL [Concomitant]
  9. ALBUTEROL [Concomitant]
  10. CALTRATE [Concomitant]
  11. ONE A DAY WOMENS [Concomitant]
  12. VITAMIN D [Concomitant]
  13. POTASSIUM CHLORIDE [Concomitant]

REACTIONS (1)
  - HAEMORRHOIDS [None]
